FAERS Safety Report 7766122 (Version 4)
Quarter: 2013Q2

REPORT INFORMATION
  Report Type: Report from Study
  Country: DE (occurrence: DE)
  Receive Date: 20110119
  Receipt Date: 20130517
  Transmission Date: 20140414
  Serious: Yes (Hospitalization, Other)
  Sender: FDA-Public Use
  Company Number: DE-JNJFOC-20091200160

PATIENT
  Sex: Female
  Weight: 85 kg

DRUGS (4)
  1. REMICADE [Suspect]
     Indication: COLITIS ULCERATIVE
     Route: 042
     Dates: start: 20090319, end: 20090428
  2. MESALAZIN [Concomitant]
     Indication: COLITIS ULCERATIVE
     Route: 048
  3. LOPERAMID [Concomitant]
     Indication: COLITIS ULCERATIVE
     Route: 048
  4. L THYROXINE [Concomitant]
     Indication: HYPOTHYROIDISM
     Route: 048

REACTIONS (2)
  - Proctocolectomy [Recovered/Resolved]
  - Colitis ulcerative [Recovered/Resolved]
